FAERS Safety Report 9927875 (Version 2)
Quarter: 2014Q1

REPORT INFORMATION
  Report Type: Spontaneous
  Country: PT (occurrence: None)
  Receive Date: 20140221
  Receipt Date: 20140319
  Transmission Date: 20141002
  Serious: Yes (Hospitalization)
  Sender: FDA-Public Use
  Company Number: B0969219A

PATIENT
  Age: 53 Year
  Sex: Male

DRUGS (6)
  1. PAROXETINE HYDROCHLORIDE [Suspect]
     Indication: DEPRESSION
     Dates: start: 20021014
  2. LORAZEPAM (FORMULATION UNKNOWN) (LORAZEPAM) [Suspect]
     Indication: DEPRESSION
     Dates: start: 20021014
  3. LITHIUM CARBONATE [Suspect]
     Indication: BIPOLAR DISORDER
     Dates: start: 1999
  4. DIAZEPAM [Suspect]
     Indication: PRODUCT USED FOR UNKNOWN INDICATION
  5. VENLAFAXINE HYDROCHLORIDE [Suspect]
     Indication: DEPRESSION
     Dates: start: 20021014
  6. TRAZODONE [Suspect]
     Indication: DEPRESSION
     Dates: start: 20021014

REACTIONS (9)
  - Toxicity to various agents [None]
  - Asthenia [None]
  - Tremor [None]
  - Dysarthria [None]
  - Abasia [None]
  - Somnolence [None]
  - Paraparesis [None]
  - Areflexia [None]
  - Asterixis [None]
